FAERS Safety Report 6110556-9 (Version None)
Quarter: 2009Q1

REPORT INFORMATION
  Report Type: 
  Country: None (occurrence: None)
  Receive Date: 20090310
  Receipt Date: 20090303
  Transmission Date: 20090719
  Serious: Yes (Hospitalization, Other)
  Sender: FDA-Public Use
  Company Number: PHHY2009FR03049

PATIENT
  Sex: Male

DRUGS (8)
  1. EXELON [Suspect]
     Indication: DEMENTIA ALZHEIMER'S TYPE
     Dosage: 4.6 MG, QD
     Route: 062
     Dates: start: 20081127, end: 20090126
  2. NITRODERM [Concomitant]
     Dosage: 5 MG DAILY
     Route: 062
  3. CRESTOR [Concomitant]
  4. KARDEGIC 75 [Concomitant]
     Dosage: 75
  5. AMIODARONE HCL [Concomitant]
     Dosage: 0.5 DF 6 DAYS PER WEEK
  6. TRINITRINE [Concomitant]
     Dosage: ON REQUEST
  7. COVERSYL [Concomitant]
     Dosage: 2 MG DAILY
  8. IPERTEN [Concomitant]
     Dosage: 10 MG DAILY

REACTIONS (4)
  - HYPOTONIA [None]
  - LOSS OF CONSCIOUSNESS [None]
  - MALAISE [None]
  - SYNCOPE [None]
